FAERS Safety Report 14001970 (Version 2)
Quarter: 2018Q1

REPORT INFORMATION
  Report Type: Spontaneous
  Country: US (occurrence: US)
  Receive Date: 20170922
  Receipt Date: 20180117
  Transmission Date: 20180508
  Serious: Yes (Hospitalization)
  Sender: FDA-Public Use
  Company Number: US-JNJFOC-20170912558

PATIENT
  Age: 29 Year
  Sex: Female
  Weight: 96.98 kg

DRUGS (2)
  1. XARELTO [Suspect]
     Active Substance: RIVAROXABAN
     Indication: THROMBOSIS PROPHYLAXIS
     Route: 048
     Dates: start: 20160830, end: 20160910
  2. XARELTO [Suspect]
     Active Substance: RIVAROXABAN
     Indication: THROMBOSIS PROPHYLAXIS
     Route: 048
     Dates: start: 20160830, end: 20160910

REACTIONS (2)
  - Upper gastrointestinal haemorrhage [Recovering/Resolving]
  - Intra-abdominal haematoma [Recovering/Resolving]

NARRATIVE: CASE EVENT DATE: 201609
